FAERS Safety Report 4527384-8 (Version None)
Quarter: 2004Q4

REPORT INFORMATION
  Report Type: 
  Country: None (occurrence: None)
  Receive Date: 20041130
  Receipt Date: 20040831
  Transmission Date: 20050328
  Serious: No
  Sender: FDA-Public Use
  Company Number: WAES 0409USA00081

PATIENT
  Age: 84 Year
  Sex: Female

DRUGS (6)
  1. ZETIA [Suspect]
     Indication: BLOOD CHOLESTEROL INCREASED
     Dosage: 10 MG/DAILY/PO
     Route: 048
     Dates: start: 20040813
  2. NORVASC [Concomitant]
  3. PLAVIX [Concomitant]
  4. ZESTRIL [Concomitant]
  5. ZOCOR [Concomitant]
  6. ZOLOFT [Concomitant]

REACTIONS (2)
  - EYE HAEMORRHAGE [None]
  - VISION BLURRED [None]
